FAERS Safety Report 9729091 (Version 2)
Quarter: 2013Q4

REPORT INFORMATION
  Report Type: Spontaneous
  Country: GB (occurrence: GB)
  Receive Date: 20131204
  Receipt Date: 20131220
  Transmission Date: 20140711
  Serious: Yes (Hospitalization, Other)
  Sender: FDA-Public Use
  Company Number: PHHY2013GB137326

PATIENT
  Age: 81 Year
  Sex: 0

DRUGS (3)
  1. LEVETIRACETAM [Suspect]
     Indication: EPILEPSY
     Dosage: 500 MG, UNK
     Route: 048
     Dates: start: 200810, end: 200904
  2. LAMOTRIGINE [Concomitant]
     Indication: EPILEPSY
     Dosage: 200 MG, UNK
     Route: 048
     Dates: start: 2007
  3. PHENYTOIN [Concomitant]
     Dosage: 425 MG, QD
     Dates: start: 2000, end: 200812

REACTIONS (3)
  - Hypochromic anaemia [Recovered/Resolved]
  - Angioedema [Recovered/Resolved]
  - Eczema [Recovered/Resolved]
